FAERS Safety Report 15063993 (Version 1)
Quarter: 2018Q2

REPORT INFORMATION
  Report Type: Report from Study
  Country: US (occurrence: US)
  Receive Date: 20180625
  Receipt Date: 20180625
  Transmission Date: 20180711
  Serious: No
  Sender: FDA-Public Use
  Company Number: US-AMGEN-USASL2016059141

PATIENT
  Age: 53 Year
  Sex: Male
  Weight: 80.73 kg

DRUGS (1)
  1. REPATHA [Suspect]
     Active Substance: EVOLOCUMAB
     Indication: TYPE V HYPERLIPIDAEMIA
     Dosage: 140 MG, TWICE A MONTH
     Route: 065

REACTIONS (3)
  - Abdominal pain upper [Recovered/Resolved]
  - Gastrointestinal disorder [Unknown]
  - Viral infection [Recovered/Resolved]
